FAERS Safety Report 6282161-5 (Version None)
Quarter: 2009Q3

REPORT INFORMATION
  Report Type: 
  Country: None (occurrence: None)
  Receive Date: 20090721
  Receipt Date: 20090721
  Transmission Date: 20100115
  Serious: Yes (Hospitalization)
  Sender: FDA-Public Use
  Company Number: None

PATIENT
  Sex: Female
  Weight: 92.9 kg

DRUGS (2)
  1. CISPLATIN [Suspect]
     Dosage: 161 MG
  2. ETOPOSIDE [Suspect]
     Dosage: 603 MG

REACTIONS (1)
  - FEBRILE NEUTROPENIA [None]
